FAERS Safety Report 14149370 (Version 1)
Quarter: 2017Q4

REPORT INFORMATION
  Report Type: Spontaneous
  Country: US (occurrence: US)
  Receive Date: 20171101
  Receipt Date: 20171101
  Transmission Date: 20180321
  Serious: Yes (Other)
  Sender: FDA-Public Use
  Company Number: PHEH2017US034061

PATIENT
  Age: 92 Year
  Sex: Female

DRUGS (10)
  1. SUTENT [Suspect]
     Active Substance: SUNITINIB MALATE
     Dosage: UNK
     Route: 048
     Dates: start: 20160203, end: 20161005
  2. SUTENT [Suspect]
     Active Substance: SUNITINIB MALATE
     Indication: GASTROINTESTINAL STROMAL TUMOUR
     Dosage: 1 DF, QD (FOR 28 DAYS, THEN 14 DAYS OFF REPEAT)
     Route: 048
     Dates: start: 20150318
  3. PREDNISONE. [Concomitant]
     Active Substance: PREDNISONE
     Indication: PRODUCT USED FOR UNKNOWN INDICATION
     Dosage: 4 DF, QD
     Route: 048
     Dates: start: 20151125
  4. VITAMIN D3 [Concomitant]
     Active Substance: CHOLECALCIFEROL
     Indication: PRODUCT USED FOR UNKNOWN INDICATION
     Dosage: 1 DF, QD (1000 UNITS)
     Route: 065
  5. AMLODIPINE [Concomitant]
     Active Substance: AMLODIPINE BESYLATE
     Indication: PRODUCT USED FOR UNKNOWN INDICATION
     Dosage: 1 DF, QD
     Route: 065
  6. SUTENT [Suspect]
     Active Substance: SUNITINIB MALATE
     Dosage: UNK
     Route: 048
     Dates: end: 20151125
  7. SUTENT [Suspect]
     Active Substance: SUNITINIB MALATE
     Dosage: UNK
     Route: 048
     Dates: start: 20170111
  8. LEVOTHYROXINE SODIUM. [Concomitant]
     Active Substance: LEVOTHYROXINE SODIUM
     Indication: PRODUCT USED FOR UNKNOWN INDICATION
     Dosage: 1 DF, QD (MONDAY TO SATURDAY)
     Route: 048
  9. SUTENT [Suspect]
     Active Substance: SUNITINIB MALATE
     Dosage: UNK
     Route: 048
     Dates: end: 20170705
  10. GLEEVEC [Suspect]
     Active Substance: IMATINIB MESYLATE
     Indication: GASTROINTESTINAL STROMAL TUMOUR
     Dosage: 400 MG, QD
     Route: 065
     Dates: start: 2013

REACTIONS (69)
  - Deep vein thrombosis [Unknown]
  - Malignant neoplasm progression [Unknown]
  - White blood cell count decreased [Unknown]
  - Chest pain [Unknown]
  - Diarrhoea [Unknown]
  - Upper respiratory tract infection [Unknown]
  - Essential hypertension [Unknown]
  - Osteoarthritis [Unknown]
  - Weight increased [Unknown]
  - Fatigue [Unknown]
  - Poor quality sleep [Recovering/Resolving]
  - Musculoskeletal discomfort [Unknown]
  - Pain [Recovered/Resolved]
  - Back pain [Unknown]
  - Skin discolouration [Unknown]
  - Mean cell volume increased [Unknown]
  - Asthenia [Unknown]
  - Gastrooesophageal reflux disease [Recovering/Resolving]
  - Thyroid cancer [Unknown]
  - Abdominal distension [Unknown]
  - Pollakiuria [Unknown]
  - Mass [Unknown]
  - Vitamin B12 deficiency [Unknown]
  - Platelet count decreased [Unknown]
  - Blood thyroid stimulating hormone decreased [Unknown]
  - Arthralgia [Unknown]
  - Neutropenia [Unknown]
  - Pain [Recovered/Resolved]
  - Amnesia [Unknown]
  - Benign neoplasm of thyroid gland [Unknown]
  - Blood pressure increased [Unknown]
  - Weight decreased [Unknown]
  - Decreased appetite [Unknown]
  - Faeces soft [Unknown]
  - Feeling abnormal [Unknown]
  - Arterial insufficiency [Unknown]
  - Abdominal pain lower [Unknown]
  - Syncope [Unknown]
  - Decreased appetite [Recovered/Resolved]
  - Rash [Recovering/Resolving]
  - Cancer pain [Unknown]
  - Second primary malignancy [Unknown]
  - Gastrointestinal stromal tumour [Unknown]
  - Hypersomnia [Recovering/Resolving]
  - Lumbar spinal stenosis [Unknown]
  - Abdominal discomfort [Unknown]
  - Pulmonary mass [Unknown]
  - Nausea [Recovered/Resolved]
  - Cough [Unknown]
  - Oedema [Unknown]
  - Peptic ulcer [Unknown]
  - Deafness neurosensory [Unknown]
  - Myocardial infarction [Unknown]
  - Hypoacusis [Not Recovered/Not Resolved]
  - Breast disorder [Unknown]
  - Limb injury [Unknown]
  - Accident [Unknown]
  - Peripheral swelling [Unknown]
  - Mean cell haemoglobin concentration decreased [Unknown]
  - Vomiting [Recovered/Resolved]
  - Pain in extremity [Unknown]
  - Erythema [Unknown]
  - Multiple sclerosis [Recovered/Resolved]
  - Adrenal insufficiency [Unknown]
  - Lethargy [Unknown]
  - Pelvic pain [Unknown]
  - Vomiting [Unknown]
  - Abdominal pain [Unknown]
  - Dysphagia [Unknown]

NARRATIVE: CASE EVENT DATE: 20140828
